FAERS Safety Report 4527116-3 (Version None)
Quarter: 2004Q4

REPORT INFORMATION
  Report Type: 
  Country: None (occurrence: None)
  Receive Date: 20041201
  Receipt Date: 20041022
  Transmission Date: 20050328
  Serious: Yes (Hospitalization)
  Sender: FDA-Public Use
  Company Number: US094498

PATIENT
  Age: 47 Year
  Sex: Female

DRUGS (6)
  1. ENBREL [Suspect]
     Indication: RHEUMATOID ARTHRITIS
     Dosage: 25 MG, 2 IN 1 WEEKS, SC
     Route: 058
     Dates: start: 20030828, end: 20040924
  2. FLURBIPROFEN [Concomitant]
  3. OMEPRAZOLE [Concomitant]
  4. ENALAPRIL MALEATE [Concomitant]
  5. PREDNISONE [Concomitant]
  6. ASCORBIC ACID/CALCIUM CARBONATE / CITRIC ACID/COLECALCIFEROL (ASCORBIC [Concomitant]

REACTIONS (2)
  - ECCHYMOSIS [None]
  - THROMBOCYTOPENIA [None]
